FAERS Safety Report 22258385 (Version 1)
Quarter: 2023Q2

REPORT INFORMATION
  Report Type: Spontaneous
  Country: US (occurrence: US)
  Receive Date: 20230427
  Receipt Date: 20230427
  Transmission Date: 20230722
  Serious: No
  Sender: FDA-Public Use
  Company Number: US-002147023-NVSC2023US096032

PATIENT
  Age: 62 Year
  Sex: Male

DRUGS (2)
  1. DOCETAXEL [Suspect]
     Active Substance: DOCETAXEL
     Indication: Prostate cancer metastatic
     Dosage: UNK UNK, Q3MO
     Route: 042
     Dates: start: 20171101, end: 20171201
  2. DOCETAXEL [Suspect]
     Active Substance: DOCETAXEL
     Dosage: 1 MG, Q3W
     Route: 042
     Dates: start: 20180301, end: 20180701

REACTIONS (3)
  - Peripheral swelling [Recovered/Resolved]
  - Alopecia [Recovering/Resolving]
  - Lymphoedema [Recovered/Resolved]

NARRATIVE: CASE EVENT DATE: 20180301
